FAERS Safety Report 6608605-4 (Version None)
Quarter: 2010Q1

REPORT INFORMATION
  Report Type: 
  Country: None (occurrence: None)
  Receive Date: 20100226
  Receipt Date: 20100226
  Transmission Date: 20100710
  Serious: No
  Sender: FDA-Public Use
  Company Number: None

PATIENT
  Age: 42 Year
  Sex: Female
  Weight: 58.9676 kg

DRUGS (4)
  1. OLANZAPINE [Suspect]
     Dosage: 40MG PO
     Route: 048
  2. HALOPERIDOL [Suspect]
     Dosage: 5MG PO
     Route: 048
  3. LORAZEPAM [Concomitant]
  4. DIPHENHYDRAMINE HCL [Concomitant]

REACTIONS (1)
  - URTICARIA [None]
